FAERS Safety Report 5030412-7 (Version None)
Quarter: 2006Q2

REPORT INFORMATION
  Report Type: 
  Country: None (occurrence: None)
  Receive Date: 20060615
  Receipt Date: 20060531
  Transmission Date: 20061013
  Serious: Yes (Hospitalization)
  Sender: FDA-Public Use
  Company Number: 2006PV014726

PATIENT
  Sex: Male

DRUGS (2)
  1. BYETTA [Suspect]
     Dosage: 10 MCG; BID; SC;  5 MCG; BID; SC
     Route: 058
     Dates: start: 20060401, end: 20060401
  2. BYETTA [Suspect]
     Dosage: 10 MCG; BID; SC;  5 MCG; BID; SC
     Route: 058
     Dates: start: 20060401

REACTIONS (2)
  - PANCREATITIS [None]
  - WEIGHT DECREASED [None]
